FAERS Safety Report 7682534-X (Version None)
Quarter: 2011Q3

REPORT INFORMATION
  Report Type: 
  Country: None (occurrence: None)
  Receive Date: 20110810
  Receipt Date: 20110726
  Transmission Date: 20111222
  Serious: Yes (Other)
  Sender: FDA-Public Use
  Company Number: 2011MA010763

PATIENT
  Age: 56 Year
  Sex: Female

DRUGS (1)
  1. DIAZEPAM [Suspect]
     Dosage: 10 MG;  ;PO
     Route: 048

REACTIONS (9)
  - DIZZINESS [None]
  - ABDOMINAL PAIN UPPER [None]
  - PRURITUS [None]
  - NASAL CONGESTION [None]
  - NIGHTMARE [None]
  - ANXIETY [None]
  - DYSPNOEA [None]
  - HYPERHIDROSIS [None]
  - FEELING ABNORMAL [None]
